FAERS Safety Report 21476644 (Version 1)
Quarter: 2022Q4

REPORT INFORMATION
  Report Type: Spontaneous
  Country: US (occurrence: None)
  Receive Date: 20221019
  Receipt Date: 20221019
  Transmission Date: 20230112
  Serious: No
  Sender: FDA-Public Use
  Company Number: US-ADAMAS Pharma-ADM202204-000909

PATIENT
  Age: 71 Year
  Sex: Female

DRUGS (6)
  1. GOCOVRI [Suspect]
     Active Substance: AMANTADINE
     Indication: Parkinson^s disease
     Route: 048
     Dates: start: 20220118
  2. BYDUREON [Concomitant]
     Active Substance: EXENATIDE
     Dosage: 2MG
  3. CLONAZEPAM [Concomitant]
     Active Substance: CLONAZEPAM
     Dosage: 0.5MG
  4. ESTRADIOL [Concomitant]
     Active Substance: ESTRADIOL
     Dosage: NOT PROVIDED
  5. PROGESTERONE [Concomitant]
     Active Substance: PROGESTERONE
     Dosage: 100 MG
  6. SINEMET [Concomitant]
     Active Substance: CARBIDOPA\LEVODOPA
     Dosage: EACH DF FOR 25/100 MG

REACTIONS (2)
  - Insomnia [Not Recovered/Not Resolved]
  - Dry mouth [Not Recovered/Not Resolved]

NARRATIVE: CASE EVENT DATE: 20220401
